FAERS Safety Report 13949455 (Version 1)
Quarter: 2017Q3

REPORT INFORMATION
  Report Type: Spontaneous
  Country: US (occurrence: US)
  Receive Date: 20170908
  Receipt Date: 20170908
  Transmission Date: 20171128
  Serious: No
  Sender: FDA-Public Use
  Company Number: US-ROCHE-1187533

PATIENT
  Age: 82 Year

DRUGS (1)
  1. RITUXAN [Suspect]
     Active Substance: RITUXIMAB
     Indication: MARGINAL ZONE LYMPHOMA
     Route: 065
     Dates: start: 201112

REACTIONS (4)
  - Peripheral pulse decreased [Unknown]
  - Peroneal nerve palsy [Unknown]
  - Skin discolouration [Unknown]
  - Peripheral coldness [Unknown]
